FAERS Safety Report 7929919-1 (Version None)
Quarter: 2011Q4

REPORT INFORMATION
  Report Type: 
  Country: None (occurrence: None)
  Receive Date: 20111118
  Receipt Date: 20111118
  Transmission Date: 20120403
  Serious: Yes (Other)
  Sender: FDA-Public Use
  Company Number: None

PATIENT
  Age: 59 Year

DRUGS (2)
  1. VIIBRYD [Suspect]
     Indication: DEPRESSION
     Dosage: 20 TO 40 ONCE PER DAY
  2. VIIBRYD [Suspect]
     Indication: ANXIETY
     Dosage: 20 TO 40 ONCE PER DAY

REACTIONS (4)
  - CLUMSINESS [None]
  - ANXIETY [None]
  - CRYING [None]
  - CONFUSIONAL STATE [None]
